FAERS Safety Report 9302770 (Version 2)
Quarter: 2013Q2

REPORT INFORMATION
  Report Type: Spontaneous
  Country: MT (occurrence: MT)
  Receive Date: 20130522
  Receipt Date: 20130605
  Transmission Date: 20140414
  Serious: Yes (Other)
  Sender: FDA-Public Use
  Company Number: PHHY2013MT050122

PATIENT
  Age: 70 Year
  Sex: Female

DRUGS (4)
  1. ZOLEDRONATE [Suspect]
     Indication: BREAST CANCER METASTATIC
     Dosage: 4 MG, PER 100ML
     Route: 042
  2. ZOLEDRONATE [Suspect]
     Dosage: 4 MG, PER 100ML
     Route: 042
  3. CALCIUM [Concomitant]
     Dosage: 600 MG, DAILY
  4. VITAMIN D3 [Concomitant]
     Dosage: 400 IU, DAILY

REACTIONS (9)
  - Grand mal convulsion [Recovering/Resolving]
  - Tetany [Recovering/Resolving]
  - Trousseau^s sign [Unknown]
  - Chvostek^s sign [Unknown]
  - Hypomagnesaemia [Unknown]
  - Hypocalcaemia [Recovered/Resolved]
  - Vitamin D decreased [Unknown]
  - Paraesthesia oral [Unknown]
  - General physical health deterioration [Recovering/Resolving]
